FAERS Safety Report 6787451-5 (Version None)
Quarter: 2010Q2

REPORT INFORMATION
  Report Type: 
  Country: None (occurrence: None)
  Receive Date: 20100623
  Receipt Date: 20070604
  Transmission Date: 20101027
  Serious: Yes (Other)
  Sender: FDA-Public Use
  Company Number: US-PFIZER INC-2007013102

PATIENT
  Sex: Male
  Weight: 81.6 kg

DRUGS (2)
  1. SUTENT [Suspect]
     Indication: RENAL CELL CARCINOMA
     Dosage: 12.5 MG
     Dates: start: 20061001
  2. PAXIL [Concomitant]

REACTIONS (3)
  - BLOOD CREATININE INCREASED [None]
  - DISEASE PROGRESSION [None]
  - RENAL CELL CARCINOMA [None]
